APPROVED DRUG PRODUCT: NORGESTIMATE AND ETHINYL ESTRADIOL
Active Ingredient: ETHINYL ESTRADIOL; NORGESTIMATE
Strength: 0.035MG;0.25MG
Dosage Form/Route: TABLET;ORAL-28
Application: A200538 | Product #001 | TE Code: AB
Applicant: GLENMARK PHARMACEUTICALS LTD
Approved: Apr 5, 2012 | RLD: No | RS: No | Type: RX